FAERS Safety Report 8021028 (Version 4)
Quarter: 2014Q1

REPORT INFORMATION
  Report Type: Report from Study
  Country: DE (occurrence: DE)
  Receive Date: 20110705
  Receipt Date: 20140327
  Transmission Date: 20141002
  Serious: Yes (Hospitalization, Other)
  Sender: FDA-Public Use
  Company Number: DE-ROCHE-732198

PATIENT
  Age: 68 Year
  Sex: Female
  Weight: 60 kg

DRUGS (10)
  1. MYCOPHENOLATE MOFETIL [Suspect]
     Indication: RENAL TRANSPLANT
     Dosage: DATE OF LAST DOSE PRIOR TO SAE: 19/MAY/2011
     Route: 048
     Dates: start: 20100815, end: 20110529
  2. MYCOPHENOLATE MOFETIL [Suspect]
     Route: 048
  3. TACROLIMUS [Suspect]
     Indication: RENAL TRANSPLANT
     Dosage: DATE OF LAST DOSE PRIOR TO SAE: 19/MAY/2011
     Route: 048
     Dates: start: 20100815, end: 20110601
  4. TACROLIMUS [Suspect]
     Route: 048
  5. BASILIXIMAB [Suspect]
     Indication: RENAL TRANSPLANT
     Dosage: DATE OF LAST DOSE PRIOR TO SAE: 13 AUG 2010
     Route: 042
  6. PREDNISOLONE [Suspect]
     Indication: RENAL TRANSPLANT
     Dosage: DATE O LAST DOSE PRIOR TO SAE:21/MAY/2010
     Route: 048
  7. AMLODIPIN [Concomitant]
     Route: 065
  8. IDEOS [Concomitant]
     Route: 065
  9. INEGY [Concomitant]
  10. PANTOL [Concomitant]
     Route: 065

REACTIONS (7)
  - Transplant failure [Recovered/Resolved]
  - Cytomegalovirus infection [Recovered/Resolved]
  - Toxicity to various agents [Recovered/Resolved]
  - Urinary tract infection [Recovered/Resolved]
  - Blood creatinine increased [Recovered/Resolved]
  - Pyrexia [Recovered/Resolved]
  - Post procedural infection [Recovered/Resolved]
